FAERS Safety Report 11416102 (Version 1)
Quarter: 2015Q3

REPORT INFORMATION
  Report Type: Spontaneous
  Country: US (occurrence: US)
  Receive Date: 20150825
  Receipt Date: 20150825
  Transmission Date: 20151125
  Serious: No
  Sender: FDA-Public Use
  Company Number: US-TEVA-539508USA

PATIENT
  Age: 87 Year
  Sex: Male

DRUGS (19)
  1. FEXOFENADINE [Suspect]
     Active Substance: FEXOFENADINE\FEXOFENADINE HYDROCHLORIDE
     Indication: PRURITUS
     Dosage: PRN
     Route: 048
     Dates: start: 201409, end: 20150130
  2. CYANOCOBALAMIN. [Concomitant]
     Active Substance: CYANOCOBALAMIN
  3. TRAVOPROST [Concomitant]
     Active Substance: TRAVOPROST
  4. MODAFINIL. [Concomitant]
     Active Substance: MODAFINIL
     Dates: start: 201401
  5. POTASSIUM CHLORIDE. [Concomitant]
     Active Substance: POTASSIUM CHLORIDE
  6. TRIAMCINOLONE ACETONIDE. [Concomitant]
     Active Substance: TRIAMCINOLONE ACETONIDE
  7. DORZOLAMIDE W/TIMOLOL [Concomitant]
  8. OMEPRAZOLE. [Concomitant]
     Active Substance: OMEPRAZOLE
     Dates: start: 2004
  9. COLECALCIFEROL [Concomitant]
     Active Substance: CHOLECALCIFEROL
  10. MOMETASONE FUROATE. [Concomitant]
     Active Substance: MOMETASONE FUROATE
     Dates: start: 2012
  11. OXYCODONE [Concomitant]
     Active Substance: OXYCODONE
     Dates: start: 2012
  12. LEVOTHYROXINE. [Concomitant]
     Active Substance: LEVOTHYROXINE
  13. DOCUSATE [Concomitant]
     Active Substance: DOCUSATE
  14. FLUNISOLIDE. [Concomitant]
     Active Substance: FLUNISOLIDE
  15. WARFARIN [Concomitant]
     Active Substance: WARFARIN
     Dates: start: 2010
  16. TERBUTALINE SULFATE. [Concomitant]
     Active Substance: TERBUTALINE SULFATE
  17. TRIAMTERENE. [Concomitant]
     Active Substance: TRIAMTERENE
     Dates: start: 2004
  18. TERAZOSIN [Concomitant]
     Active Substance: TERAZOSIN\TERAZOSIN HYDROCHLORIDE
  19. BRIMONIDINE [Concomitant]
     Active Substance: BRIMONIDINE TARTRATE

REACTIONS (3)
  - Drug ineffective for unapproved indication [Unknown]
  - Drug administered to patient of inappropriate age [Unknown]
  - Expired product administered [Unknown]

NARRATIVE: CASE EVENT DATE: 201409
